FAERS Safety Report 8009040 (Version 2)
Quarter: 2013Q2

REPORT INFORMATION
  Report Type: Spontaneous
  Country: US (occurrence: US)
  Receive Date: 20110624
  Receipt Date: 20130628
  Transmission Date: 20140414
  Serious: Yes (Other)
  Sender: FDA-Public Use
  Company Number: US-ASTRAZENECA-2011SE36953

PATIENT
  Age: 46 Year
  Sex: Female
  Weight: 67.1 kg

DRUGS (16)
  1. LISINOPRIL [Suspect]
     Route: 065
  2. SYMBICORT [Suspect]
     Dosage: 160/4.5 MCG, 2 PUFFS TWICE DAILY
     Route: 055
  3. LYRICA [Suspect]
     Route: 065
  4. LYRICA [Suspect]
     Dosage: ONCE A DAY ALTERNATING WITH TWICE A DAY
     Route: 065
  5. LYRICA [Suspect]
     Dosage: ONE CAP ALTERNATE ONE TAB THEN TWO QOD
     Route: 065
  6. NORVASC [Suspect]
     Route: 065
  7. NORVASC [Suspect]
     Route: 065
  8. COMBIVENT [Concomitant]
     Dosage: 103 MCG/18 MCG, 2 PUFFS FOUR TIMES DAILY PRN
  9. PRAVACHOL [Concomitant]
  10. PROAIR HFA [Concomitant]
     Dosage: 90 MCG/ACT 2 PUFFS EVERY 6 HOURS
  11. ROBITUSSIN A-C [Concomitant]
     Dosage: 10 MG 5 ML EVERY 6 HOURS
  12. TRAMADOL HCL [Concomitant]
  13. TRAMADOL HCL [Concomitant]
     Dosage: 1-2 TABS FOUR TIMES DAILY PRN
  14. ZYBAN [Concomitant]
  15. NAPROXEN [Concomitant]
  16. FLEXERIL [Concomitant]
     Dosage: ONE TAB AT BEDTIME, PRN

REACTIONS (15)
  - Cervix carcinoma [Unknown]
  - Breast cyst [Unknown]
  - Breast pain [Unknown]
  - Chronic obstructive pulmonary disease [Unknown]
  - Hyperlipidaemia [Unknown]
  - Hypertension [Unknown]
  - Fibromyalgia [Unknown]
  - Arthritis [Unknown]
  - Oedema peripheral [Unknown]
  - Apathy [Unknown]
  - Depression [Unknown]
  - Tobacco abuse [Unknown]
  - Vertigo positional [Unknown]
  - Temporomandibular joint syndrome [Unknown]
  - Nasal septum deviation [Unknown]
